FAERS Safety Report 8499227-1 (Version None)
Quarter: 2012Q2

REPORT INFORMATION
  Report Type: 
  Country: None (occurrence: None)
  Receive Date: 20120405
  Receipt Date: 20110216
  Transmission Date: 20120825
  Serious: Yes (Other)
  Sender: FDA-Public Use
  Company Number: PHHY2010US88576

PATIENT
  Age: 80 Year
  Sex: Female
  Weight: 53.1 kg

DRUGS (1)
  1. RECLAST [Suspect]
     Indication: OSTEOPOROSIS
     Dosage: 5 MG, INFUSION
     Dates: start: 20101223, end: 20101223

REACTIONS (10)
  - SYNCOPE [None]
  - PAIN [None]
  - CONSTIPATION [None]
  - NAUSEA [None]
  - HEADACHE [None]
  - DIZZINESS [None]
  - FATIGUE [None]
  - MUSCLE SPASMS [None]
  - PARAESTHESIA [None]
  - INFLUENZA LIKE ILLNESS [None]
